FAERS Safety Report 7028436-3 (Version None)
Quarter: 2010Q3

REPORT INFORMATION
  Report Type: 
  Country: None (occurrence: None)
  Receive Date: 20100930
  Receipt Date: 20100922
  Transmission Date: 20110219
  Serious: Yes (Other)
  Sender: FDA-Public Use
  Company Number: 2010SP050981

PATIENT
  Age: 24 Year
  Sex: Female

DRUGS (1)
  1. NUVARING [Suspect]
     Indication: PRODUCT USED FOR UNKNOWN INDICATION
     Dosage: QM;VAG
     Route: 067
     Dates: start: 20100601

REACTIONS (7)
  - AMENORRHOEA [None]
  - CYSTITIS [None]
  - HEADACHE [None]
  - HYPOAESTHESIA [None]
  - MOOD SWINGS [None]
  - NAUSEA [None]
  - OVARIAN CYST [None]
